FAERS Safety Report 6252921-5 (Version None)
Quarter: 2009Q3

REPORT INFORMATION
  Report Type: 
  Country: None (occurrence: None)
  Receive Date: 20090701
  Receipt Date: 20090624
  Transmission Date: 20100115
  Serious: Yes (Hospitalization)
  Sender: FDA-Public Use
  Company Number: A0793515A

PATIENT
  Sex: Female

DRUGS (4)
  1. LAMICTAL [Suspect]
     Dosage: 1200MG PER DAY
     Route: 048
     Dates: start: 20070601
  2. NEURONTIN [Concomitant]
  3. FRISIUM [Concomitant]
  4. LOESTRIN 1.5/30 [Concomitant]

REACTIONS (3)
  - DIZZINESS [None]
  - DRUG SCREEN POSITIVE [None]
  - VOMITING [None]
